FAERS Safety Report 8842711 (Version 2)
Quarter: 2012Q4

REPORT INFORMATION
  Report Type: 
  Country: US (occurrence: US)
  Receive Date: 20121016
  Receipt Date: 20121115
  Transmission Date: 20130627
  Serious: No
  Sender: FDA-Public Use
  Company Number: US-B.I. PHARMACEUTICALS,INC./RIDGEFIELD-2012-BP-24406BP

PATIENT
  Age: 87 Year
  Sex: Female
  Weight: 73 kg

DRUGS (7)
  1. SPIRIVA [Suspect]
     Indication: CHRONIC OBSTRUCTIVE PULMONARY DISEASE
     Dosage: 18 mcg
     Route: 055
     Dates: start: 2004, end: 20120926
  2. FUROSEMIDE [Concomitant]
     Indication: FLUID RETENTION
     Dosage: 40 mg
     Route: 048
     Dates: start: 20120928
  3. VENTOLIN [Concomitant]
     Route: 055
     Dates: start: 2004
  4. ADVAIR [Concomitant]
     Indication: CHRONIC OBSTRUCTIVE PULMONARY DISEASE
     Dosage: (Inhalation Solution) Strength: 250 mg/50 mg; Daily Dose: 250 mg/50 mg
     Route: 055
     Dates: start: 1985
  5. DILANTIN [Concomitant]
     Indication: CONVULSION
     Dosage: 200 mg
     Route: 048
     Dates: start: 2004
  6. COUMADIN [Concomitant]
     Dosage: 5 mg
     Route: 048
     Dates: start: 2004
  7. ENALAPRIL [Concomitant]
     Dosage: 20 mg
     Route: 048
     Dates: start: 2004

REACTIONS (2)
  - Product quality issue [Recovered/Resolved]
  - Oral discomfort [Recovered/Resolved]
